FAERS Safety Report 18364926 (Version 3)
Quarter: 2021Q1

REPORT INFORMATION
  Report Type: Spontaneous
  Country: JP (occurrence: JP)
  Receive Date: 20201009
  Receipt Date: 20210122
  Transmission Date: 20210419
  Serious: Yes (Other)
  Sender: FDA-Public Use
  Company Number: NVSJ2020JP009975

PATIENT
  Age: 62 Year
  Sex: Male

DRUGS (4)
  1. BEOVU [Suspect]
     Active Substance: BROLUCIZUMAB-DBLL
     Indication: AGE-RELATED MACULAR DEGENERATION
     Dosage: 6 MG
     Route: 031
     Dates: start: 20200605, end: 20200605
  2. BEOVU [Suspect]
     Active Substance: BROLUCIZUMAB-DBLL
     Dosage: 6 MG
     Route: 031
     Dates: start: 20200731, end: 20200731
  3. BEOVU [Suspect]
     Active Substance: BROLUCIZUMAB-DBLL
     Dosage: 6 MG
     Route: 031
     Dates: start: 20200703, end: 20200703
  4. BEOVU [Suspect]
     Active Substance: BROLUCIZUMAB-DBLL
     Dosage: 6 MG
     Route: 031
     Dates: start: 20200924, end: 20200924

REACTIONS (11)
  - Retinal vasculitis [Recovered/Resolved with Sequelae]
  - Visual acuity reduced transiently [Unknown]
  - Retinal perivascular sheathing [Unknown]
  - Vitreous floaters [Recovered/Resolved with Sequelae]
  - Ocular hypertension [Recovering/Resolving]
  - Anterior chamber inflammation [Recovering/Resolving]
  - Intraocular pressure increased [Unknown]
  - Retinal vascular disorder [Unknown]
  - Conjunctival hyperaemia [Recovering/Resolving]
  - Non-infectious endophthalmitis [Recovering/Resolving]
  - Keratic precipitates [Unknown]

NARRATIVE: CASE EVENT DATE: 20200926
